FAERS Safety Report 15289261 (Version 1)
Quarter: 2018Q3

REPORT INFORMATION
  Report Type: Spontaneous
  Country: TR (occurrence: TR)
  Receive Date: 20180817
  Receipt Date: 20180817
  Transmission Date: 20181010
  Serious: Yes (Hospitalization)
  Sender: FDA-Public Use
  Company Number: TR-ABBVIE-18K-161-2452691-00

PATIENT
  Age: 33 Year
  Sex: Male

DRUGS (1)
  1. ADALIMUMAB [Suspect]
     Active Substance: ADALIMUMAB
     Indication: POLYARTHRITIS
     Dosage: STARTED AS WEEKLY DOSE
     Route: 058

REACTIONS (4)
  - Psoriasis [Recovering/Resolving]
  - Therapy non-responder [Unknown]
  - Gout [Recovering/Resolving]
  - Off label use [Unknown]
